FAERS Safety Report 25797762 (Version 1)
Quarter: 2025Q3

REPORT INFORMATION
  Report Type: Spontaneous
  Country: US (occurrence: US)
  Receive Date: 20250912
  Receipt Date: 20250912
  Transmission Date: 20251021
  Serious: No
  Sender: TEVA
  Company Number: US-TEVA-VS-3369409

PATIENT
  Age: 54 Year
  Sex: Male

DRUGS (3)
  1. ISOTRETINOIN [Suspect]
     Active Substance: ISOTRETINOIN
     Indication: Folliculitis
     Route: 048
  2. DIPHENHYDRAMINE [Concomitant]
     Active Substance: DIPHENHYDRAMINE
     Indication: Product used for unknown indication
     Dosage: FOR AT LEAST THE FIRST THREE MONTHS OF TREATMENT
  3. AMOXICILLIN [Concomitant]
     Active Substance: AMOXICILLIN
     Indication: Wound

REACTIONS (3)
  - Spinal osteoarthritis [Unknown]
  - Drug ineffective for unapproved indication [Unknown]
  - Folliculitis [Unknown]
